FAERS Safety Report 7596216-6 (Version None)
Quarter: 2011Q3

REPORT INFORMATION
  Report Type: 
  Country: None (occurrence: None)
  Receive Date: 20110707
  Receipt Date: 20110628
  Transmission Date: 20111222
  Serious: Yes (Hospitalization)
  Sender: FDA-Public Use
  Company Number: FR-ELI_LILLY_AND_COMPANY-FR201106007886

PATIENT
  Age: 44 Year
  Sex: Male

DRUGS (7)
  1. ASPIRIN [Concomitant]
     Dosage: 160 MG, QD
     Route: 048
     Dates: start: 20110213
  2. PERINDOPRIL ERBUMINE [Concomitant]
     Dosage: 5 MG, QD
     Route: 048
     Dates: start: 20110215
  3. DIAMICRON [Concomitant]
     Dosage: 30 MG, BID
     Route: 048
     Dates: start: 20110217
  4. TENORMIN [Concomitant]
     Dosage: 50 MG, QD
     Route: 048
     Dates: start: 20110215
  5. VISIPAQUE [Concomitant]
     Dosage: UNK, UNKNOWN
     Route: 042
     Dates: start: 20110214, end: 20110216
  6. EFFIENT [Suspect]
     Dosage: 10 MG, QD
     Route: 048
     Dates: start: 20110217
  7. CRESTOR [Concomitant]
     Dosage: 20 MG, QD
     Route: 048
     Dates: start: 20110213

REACTIONS (4)
  - DYSGEUSIA [None]
  - RASH MACULO-PAPULAR [None]
  - SKIN EXFOLIATION [None]
  - CHEILITIS [None]
